FAERS Safety Report 21305589 (Version 9)
Quarter: 2022Q4

REPORT INFORMATION
  Report Type: Spontaneous
  Country: CA (occurrence: CA)
  Receive Date: 20220908
  Receipt Date: 20221226
  Transmission Date: 20230113
  Serious: Yes (Other)
  Sender: FDA-Public Use
  Company Number: CA-CELLTRION INC.-2022CA007778

PATIENT

DRUGS (13)
  1. INFLECTRA [Suspect]
     Active Substance: INFLIXIMAB-DYYB
     Indication: Crohn^s disease
     Dosage: 10 MG/KG, EVERY 4 WEEKS
     Route: 042
     Dates: start: 20220503
  2. INFLECTRA [Suspect]
     Active Substance: INFLIXIMAB-DYYB
     Dosage: 10 MG/KG, EVERY 4 WEEKS
     Route: 042
     Dates: start: 20220628
  3. INFLECTRA [Suspect]
     Active Substance: INFLIXIMAB-DYYB
     Dosage: 10 MG/KG, EVERY 4 WEEKS
     Route: 042
     Dates: start: 20220729
  4. INFLECTRA [Suspect]
     Active Substance: INFLIXIMAB-DYYB
     Dosage: 10 MG/KG, EVERY 4 WEEKS
     Route: 042
     Dates: start: 20220729
  5. INFLECTRA [Suspect]
     Active Substance: INFLIXIMAB-DYYB
     Dosage: 10 MG/KG EVERY 4 WEEKS
     Route: 042
     Dates: start: 20220823
  6. INFLECTRA [Suspect]
     Active Substance: INFLIXIMAB-DYYB
     Dosage: 800 MG, (SUPPOSED TO RECEIVE 10 MG/KG), EVERY 4 WEEK
     Route: 042
     Dates: start: 20220920
  7. INFLECTRA [Suspect]
     Active Substance: INFLIXIMAB-DYYB
     Dosage: 10 MG/KG EVERY 4 WEEKS
     Route: 042
  8. INFLECTRA [Suspect]
     Active Substance: INFLIXIMAB-DYYB
     Dosage: 800 MG, (SUPPOSED TO RECEIVE 10 MG/KG), EVERY 4 WEEK
     Route: 042
     Dates: start: 20221017
  9. INFLECTRA [Suspect]
     Active Substance: INFLIXIMAB-DYYB
     Dosage: 10 MG/KG EVERY 4 WEEKS
     Route: 042
  10. INFLECTRA [Suspect]
     Active Substance: INFLIXIMAB-DYYB
     Dosage: 10 MG/KG EVERY 4 WEEKS
     Route: 042
     Dates: start: 20221115
  11. INFLECTRA [Suspect]
     Active Substance: INFLIXIMAB-DYYB
     Dosage: 10 MG/KG EVERY 4 WEEKS
     Route: 042
     Dates: start: 20221213
  12. PREDNISONE [Concomitant]
     Active Substance: PREDNISONE
     Dosage: 40 MG
  13. PREDNISONE [Concomitant]
     Active Substance: PREDNISONE
     Dosage: UNK
     Dates: start: 20221207

REACTIONS (15)
  - Haematochezia [Unknown]
  - Abdominal pain [Recovered/Resolved]
  - Drug ineffective [Unknown]
  - Off label use [Unknown]
  - Off label use [Unknown]
  - Intentional product use issue [Unknown]
  - Condition aggravated [Not Recovered/Not Resolved]
  - Proctalgia [Not Recovered/Not Resolved]
  - Diarrhoea [Not Recovered/Not Resolved]
  - Malaise [Unknown]
  - Faeces soft [Unknown]
  - Frequent bowel movements [Unknown]
  - Anal fissure [Not Recovered/Not Resolved]
  - Haemorrhoids [Not Recovered/Not Resolved]
  - Fatigue [Not Recovered/Not Resolved]

NARRATIVE: CASE EVENT DATE: 20220101
